FAERS Safety Report 22228310 (Version 1)
Quarter: 2023Q2

REPORT INFORMATION
  Report Type: Spontaneous
  Country: DE (occurrence: DE)
  Receive Date: 20230419
  Receipt Date: 20230419
  Transmission Date: 20230722
  Serious: Yes (Hospitalization, Other)
  Sender: FDA-Public Use
  Company Number: DE-BRISTOL-MYERS SQUIBB COMPANY-2023-048997

PATIENT
  Age: 37 Year
  Sex: Male

DRUGS (8)
  1. NIVOLUMAB [Suspect]
     Active Substance: NIVOLUMAB
     Indication: Metastatic malignant melanoma
     Dosage: Q3W - EVERY 3 WEEKS
     Dates: start: 202209
  2. IPILIMUMAB [Suspect]
     Active Substance: IPILIMUMAB
     Indication: Metastatic malignant melanoma
     Dates: start: 202209
  3. DENOSUMAB [Concomitant]
     Active Substance: DENOSUMAB
     Indication: Metastatic malignant melanoma
  4. TAFINLAR [Concomitant]
     Active Substance: DABRAFENIB MESYLATE
     Indication: Metastatic malignant melanoma
     Dates: start: 202301
  5. MEKINIST [Concomitant]
     Active Substance: TRAMETINIB DIMETHYL SULFOXIDE
     Indication: Metastatic malignant melanoma
     Dates: start: 202301
  6. ECULIZUMAB [Concomitant]
     Active Substance: ECULIZUMAB
     Indication: Metastatic malignant melanoma
  7. MEROPENEM [Concomitant]
     Active Substance: MEROPENEM
     Indication: Metastatic malignant melanoma
  8. TORSEMIDE [Concomitant]
     Active Substance: TORSEMIDE
     Indication: Metastatic malignant melanoma

REACTIONS (19)
  - Renal failure [Unknown]
  - Atypical haemolytic uraemic syndrome [Unknown]
  - Hypersplenism [Unknown]
  - COVID-19 [Recovered/Resolved]
  - Autoimmune nephritis [Unknown]
  - Anaemia [Unknown]
  - Intestinal metastasis [Unknown]
  - Ileus [Unknown]
  - Pleural effusion [Unknown]
  - Pulmonary congestion [Unknown]
  - Oedema peripheral [Unknown]
  - Hepatic enzyme increased [Unknown]
  - Pancytopenia [Unknown]
  - Cytomegalovirus infection [Unknown]
  - Metastases to central nervous system [Unknown]
  - Peritonitis [Unknown]
  - Bacteraemia [Unknown]
  - Acute kidney injury [Unknown]
  - Weight increased [Unknown]

NARRATIVE: CASE EVENT DATE: 20221001
